FAERS Safety Report 4600677-1 (Version None)
Quarter: 2005Q1

REPORT INFORMATION
  Report Type: 
  Country: None (occurrence: None)
  Receive Date: 20050127
  Receipt Date: 20041108
  Transmission Date: 20050727
  Serious: No
  Sender: FDA-Public Use
  Company Number: USA041183503

PATIENT
  Age: 33 Year
  Sex: Female
  Weight: 70 kg

DRUGS (4)
  1. STRATTERA [Suspect]
     Indication: DEPRESSION
     Dosage: 40 MG DAY
     Dates: start: 20030601
  2. PROZAC [Suspect]
     Indication: DEPRESSION
     Dosage: 40 MG DAY
     Dates: start: 20030601
  3. DHEA [Concomitant]
  4. TRAZODONE HCL [Concomitant]

REACTIONS (4)
  - ANTIPHOSPHOLIPID SYNDROME [None]
  - DISTURBANCE IN ATTENTION [None]
  - DYSPNOEA [None]
  - HEADACHE [None]
